FAERS Safety Report 24850394 (Version 1)
Quarter: 2025Q1

REPORT INFORMATION
  Report Type: Spontaneous
  Country: US (occurrence: None)
  Receive Date: 20250116
  Receipt Date: 20250116
  Transmission Date: 20250409
  Serious: No
  Sender: FDA-CTU
  Company Number: None

PATIENT

DRUGS (1)
  1. XELJANZ [Suspect]
     Active Substance: TOFACITINIB CITRATE

REACTIONS (6)
  - Movement disorder [None]
  - Knee operation [None]
  - Pain [None]
  - Neck pain [None]
  - Musculoskeletal stiffness [None]
  - Musculoskeletal stiffness [None]
